FAERS Safety Report 10153855 (Version 1)
Quarter: 2014Q2

REPORT INFORMATION
  Report Type: Report from Study
  Country: CL (occurrence: CL)
  Receive Date: 20140506
  Receipt Date: 20140506
  Transmission Date: 20141212
  Serious: Yes (Death, Hospitalization)
  Sender: FDA-Public Use
  Company Number: CL-ROCHE-1393474

PATIENT
  Age: 52 Year
  Sex: Female

DRUGS (1)
  1. HERCEPTIN [Suspect]
     Indication: BREAST CANCER
     Route: 058
     Dates: start: 20140414, end: 20140430

REACTIONS (2)
  - Septic shock [Fatal]
  - Metastasis [Not Recovered/Not Resolved]
